FAERS Safety Report 7334625-0 (Version None)
Quarter: 2011Q1

REPORT INFORMATION
  Report Type: 
  Country: None (occurrence: None)
  Receive Date: 20110224
  Receipt Date: 20110210
  Transmission Date: 20110831
  Serious: Yes (Hospitalization, Other)
  Sender: FDA-Public Use
  Company Number: 013692

PATIENT
  Sex: Female

DRUGS (4)
  1. KEPPRA [Suspect]
     Dosage: (1500 MG BID, DOSE INCREASED ORAL), (GRADUAL DOSE DECREASE)
     Route: 048
     Dates: start: 20100420, end: 20100601
  2. AMLOR [Concomitant]
  3. SIMVASTATIN [Concomitant]
  4. COVERSYL PLUS [Concomitant]

REACTIONS (2)
  - SOMNOLENCE [None]
  - ELECTROENCEPHALOGRAM ABNORMAL [None]
